FAERS Safety Report 5518379-6 (Version None)
Quarter: 2007Q4

REPORT INFORMATION
  Report Type: 
  Country: None (occurrence: None)
  Receive Date: 20071115
  Receipt Date: 20071113
  Transmission Date: 20080405
  Serious: Yes (Hospitalization)
  Sender: FDA-Public Use
  Company Number: FR-WYE-G00604107

PATIENT
  Sex: Female
  Weight: 11 kg

DRUGS (2)
  1. ADVIL [Suspect]
     Indication: PYREXIA
     Dosage: UNSPECIFIED
     Route: 048
     Dates: start: 20070726, end: 20070728
  2. ADVIL [Suspect]
     Indication: PAIN

REACTIONS (1)
  - CELLULITIS [None]
